FAERS Safety Report 6979246-4 (Version None)
Quarter: 2010Q3

REPORT INFORMATION
  Report Type: 
  Country: None (occurrence: None)
  Receive Date: 20100913
  Receipt Date: 20100906
  Transmission Date: 20110219
  Serious: Yes (Other)
  Sender: FDA-Public Use
  Company Number: CN-JNJFOC-20100706759

PATIENT
  Age: 78 Year
  Sex: Male

DRUGS (4)
  1. ITRACONAZOLE [Suspect]
     Indication: FUNGAL INFECTION
     Route: 041
  2. AVELOX [Suspect]
     Indication: FUNGAL INFECTION
     Route: 065
  3. CARBENIN [Suspect]
     Indication: FUNGAL INFECTION
     Route: 065
  4. VANCOMYCIN [Suspect]
     Indication: FUNGAL INFECTION
     Route: 065

REACTIONS (4)
  - CARDIAC FAILURE [None]
  - ELECTROLYTE IMBALANCE [None]
  - HYPERTENSION [None]
  - HYPOPROTEINAEMIA [None]
